FAERS Safety Report 8299209-9 (Version None)
Quarter: 2012Q2

REPORT INFORMATION
  Report Type: 
  Country: None (occurrence: None)
  Receive Date: 20120419
  Receipt Date: 20120412
  Transmission Date: 20120825
  Serious: Yes (Hospitalization)
  Sender: FDA-Public Use
  Company Number: US-AMGEN-USASP2012004527

PATIENT
  Age: 63 Year
  Sex: Female
  Weight: 71.655 kg

DRUGS (5)
  1. SIMVASTATIN [Concomitant]
     Indication: HYPERCHOLESTEROLAEMIA
     Dosage: 20 MG, QD
     Route: 048
  2. ENBREL [Suspect]
     Indication: RHEUMATOID ARTHRITIS
     Dosage: 50 MG, QWK
     Route: 058
     Dates: start: 20090522, end: 20120110
  3. METHOTREXATE [Concomitant]
     Indication: RHEUMATOID ARTHRITIS
     Dosage: 7.5 MG, QWK
     Route: 058
  4. FOLIC ACID [Concomitant]
     Dosage: 1 MG, QD
     Route: 048
     Dates: start: 20081201
  5. ENBREL [Suspect]
     Dosage: 50 MG, QWK
     Route: 058
     Dates: start: 20090513, end: 20120110

REACTIONS (9)
  - INTERVERTEBRAL DISC DEGENERATION [None]
  - RASH [None]
  - PRURITUS [None]
  - CERVICOBRACHIAL SYNDROME [None]
  - LOCAL SWELLING [None]
  - ERYTHEMA [None]
  - HYPERSENSITIVITY [None]
  - DIVERTICULITIS [None]
  - SPINAL OSTEOARTHRITIS [None]
